FAERS Safety Report 18600511 (Version 2)
Quarter: 2021Q1

REPORT INFORMATION
  Report Type: Spontaneous
  Country: US (occurrence: US)
  Receive Date: 20201210
  Receipt Date: 20210108
  Transmission Date: 20210419
  Serious: No
  Sender: FDA-Public Use
  Company Number: US-PFIZER INC-2020485658

PATIENT
  Age: 61 Year
  Sex: Male

DRUGS (2)
  1. ARTHROTEC [Suspect]
     Active Substance: DICLOFENAC SODIUM\MISOPROSTOL
     Dosage: UNK, AS NEEDED; AS NEEDED (1 BID); QUANTITY FOR 90 DAYS: 180, 75MG 180 TABLETS
  2. ARTHROTEC [Suspect]
     Active Substance: DICLOFENAC SODIUM\MISOPROSTOL
     Dosage: UNK; 75MG 180 TABLETS

REACTIONS (1)
  - Impaired driving ability [Unknown]
